FAERS Safety Report 4902350-9 (Version None)
Quarter: 2006Q1

REPORT INFORMATION
  Report Type: 
  Country: None (occurrence: None)
  Receive Date: 20060207
  Receipt Date: 20060111
  Transmission Date: 20060701
  Serious: Yes (Other)
  Sender: FDA-Public Use
  Company Number: PHBS2006JP00836

PATIENT
  Age: 86 Year
  Sex: Male

DRUGS (8)
  1. FUROSEMIDE [Suspect]
     Route: 065
  2. ENALAPRIL MALEATE [Concomitant]
     Route: 065
  3. WARFARIN POTASSIUM [Concomitant]
     Route: 065
  4. FAMOTIDINE [Concomitant]
     Route: 065
  5. TOCOPHERYL NICOTINATE [Concomitant]
     Route: 065
  6. MUCOSTA [Concomitant]
  7. CARBAMAZEPINE [Suspect]
     Indication: DEMENTIA
     Dosage: 300 MG/DAY
     Route: 065
  8. REBAMIPIDE [Concomitant]

REACTIONS (10)
  - ANTICONVULSANT DRUG LEVEL INCREASED [None]
  - ATRIAL FIBRILLATION [None]
  - BRADYCARDIA [None]
  - CHOLESTASIS [None]
  - CONVULSION [None]
  - DEPRESSED LEVEL OF CONSCIOUSNESS [None]
  - DRUG INTERACTION [None]
  - HYPERKALAEMIA [None]
  - PYREXIA [None]
  - THERAPEUTIC AGENT TOXICITY [None]
